FAERS Safety Report 4744442-3 (Version None)
Quarter: 2005Q3

REPORT INFORMATION
  Report Type: 
  Country: None (occurrence: None)
  Receive Date: 20050811
  Receipt Date: 20050811
  Transmission Date: 20060218
  Serious: Yes (Hospitalization)
  Sender: FDA-Public Use
  Company Number: None

PATIENT
  Age: 36 Year
  Sex: Female
  Weight: 63 kg

DRUGS (8)
  1. SULFAMETHOXAZOLE + TRIMETHOPRIM [Suspect]
     Indication: PNEUMOCYSTIS JIROVECI PNEUMONIA
     Dosage: ONE PO Q DAY
     Route: 048
     Dates: start: 20050724, end: 20050726
  2. SULFAMETHOXAZOLE + TRIMETHOPRIM [Suspect]
     Indication: PROPHYLAXIS
     Dosage: ONE PO Q DAY
     Route: 048
     Dates: start: 20050724, end: 20050726
  3. LINEZOLID 600 MG IV [Suspect]
     Indication: CELLULITIS
     Dosage: 600 MG  IV  ONCE
     Route: 042
     Dates: start: 20050722
  4. VANCOMYCIN [Concomitant]
  5. CLINDAMYCIN [Concomitant]
  6. ZITHROMAX [Concomitant]
  7. CEFTRIAXONE [Concomitant]
  8. METRONIDAZOLE [Concomitant]

REACTIONS (4)
  - MYOGLOBIN BLOOD INCREASED [None]
  - NEPHRITIS INTERSTITIAL [None]
  - RENAL FAILURE ACUTE [None]
  - RHABDOMYOLYSIS [None]
